FAERS Safety Report 14056968 (Version 1)
Quarter: 2017Q4

REPORT INFORMATION
  Report Type: Report from Study
  Country: US (occurrence: US)
  Receive Date: 20171006
  Receipt Date: 20171006
  Transmission Date: 20180321
  Serious: Yes (Hospitalization)
  Sender: FDA-Public Use
  Company Number: US-REGENERON PHARMACEUTICALS, INC.-2017-23007

PATIENT

DRUGS (12)
  1. ALKA-SELTZER PLUS                  /00554101/ [Concomitant]
     Indication: SINUS CONGESTION
     Dosage: UNK
     Route: 048
     Dates: start: 20141202
  2. NEOMYCIN. [Concomitant]
     Active Substance: NEOMYCIN
     Dosage: 1 GTT, 0.5 %
     Route: 047
     Dates: start: 20170519
  3. INSULIN [Concomitant]
     Active Substance: INSULIN NOS
     Indication: TYPE 2 DIABETES MELLITUS
     Dosage: UNK, AS NECESSARY
     Route: 058
     Dates: start: 2009
  4. EYLEA [Suspect]
     Active Substance: AFLIBERCEPT
     Indication: DIABETIC RETINOPATHY
     Dosage: 2 MG, UNK, LEFT EYE (OS), Q 12 WEEKS
     Route: 031
     Dates: start: 20160818
  5. KETOROLAC [Concomitant]
     Active Substance: KETOROLAC\KETOROLAC TROMETHAMINE
     Indication: CATARACT OPERATION
     Dosage: 0.5 %
     Route: 047
     Dates: start: 20170428, end: 20170504
  6. KETOROLAC [Concomitant]
     Active Substance: KETOROLAC\KETOROLAC TROMETHAMINE
     Dosage: 1 GTT, AS NECESSARY, 0.5 %
     Route: 047
     Dates: start: 20170519, end: 201705
  7. NEOMYCIN. [Concomitant]
     Active Substance: NEOMYCIN
     Dosage: 1 GTT, BID, 0.5 %
     Route: 047
     Dates: start: 20170505, end: 20170511
  8. ASPIRIN                            /00002701/ [Concomitant]
     Active Substance: ASPIRIN
     Indication: CARDIOVASCULAR EVENT PROPHYLAXIS
     Dosage: 81 MG, AS NECESSARY
     Route: 048
     Dates: start: 1980
  9. NEOMYCIN. [Concomitant]
     Active Substance: NEOMYCIN
     Dosage: 1 GTT, QD, 0.5 %
     Route: 047
     Dates: start: 20170512, end: 20170518
  10. KETOROLAC [Concomitant]
     Active Substance: KETOROLAC\KETOROLAC TROMETHAMINE
     Dosage: 0.5 %
     Route: 047
     Dates: start: 20170505, end: 20170511
  11. KETOROLAC [Concomitant]
     Active Substance: KETOROLAC\KETOROLAC TROMETHAMINE
     Dosage: 0.5 %
     Route: 047
     Dates: start: 20170512, end: 20170518
  12. NEOMYCIN. [Concomitant]
     Active Substance: NEOMYCIN
     Indication: CATARACT OPERATION
     Dosage: 1 GTT, TID, 0.5 %
     Route: 047
     Dates: start: 20170428, end: 20170504

REACTIONS (1)
  - Adverse event [Unknown]
